FAERS Safety Report 8793411 (Version 1)
Quarter: 2012Q4

REPORT INFORMATION
  Report Type: 
  Country: None (occurrence: None)
  Receive Date: 20120917
  Receipt Date: 20120917
  Transmission Date: 20130627
  Serious: Yes (Other)
  Sender: FDA-Public Use
  Company Number: RS-ROCHE-1113368

PATIENT

DRUGS (2)
  1. CAPECITABINE [Suspect]
     Indication: BREAST CANCER METASTATIC
     Route: 065
  2. TAXOL [Concomitant]

REACTIONS (3)
  - Metastases to bone [Unknown]
  - Metastasis [Unknown]
  - Metastases to lymph nodes [Not Recovered/Not Resolved]
